FAERS Safety Report 10184805 (Version 1)
Quarter: 2014Q2

REPORT INFORMATION
  Report Type: Spontaneous
  Country: US (occurrence: None)
  Receive Date: 20140519
  Receipt Date: 20140519
  Transmission Date: 20141212
  Serious: No
  Sender: FDA-Public Use
  Company Number: 2014-00053

PATIENT
  Age: 66 Year
  Sex: Male
  Weight: 78.02 kg

DRUGS (7)
  1. ZICAM ULTRA COLD REMEDY LOZENGES [Suspect]
     Indication: INFLUENZA
     Dosage: 1 LOZENGE ORALLY EVERY 4-5 HOURS
     Route: 048
     Dates: start: 20140328
  2. ZICAM ULTRA COLD REMEDY LOZENGES [Suspect]
     Indication: NASOPHARYNGITIS
     Dosage: 1 LOZENGE ORALLY EVERY 4-5 HOURS
     Route: 048
     Dates: start: 20140328
  3. ZICAM COLD REMEDY ORAL MIST [Suspect]
     Indication: INFLUENZA
     Dosage: 2 SPRAYS ORALLY EVERY 4-5 HOURS
     Route: 048
     Dates: start: 20140328
  4. ZICAM COLD REMEDY ORAL MIST [Suspect]
     Indication: NASOPHARYNGITIS
     Dosage: 2 SPRAYS ORALLY EVERY 4-5 HOURS
     Route: 048
     Dates: start: 20140328
  5. TOPROL [Concomitant]
  6. LISINOPRIL [Concomitant]
  7. LIPITOR [Concomitant]

REACTIONS (2)
  - Dysgeusia [None]
  - Hyposmia [None]
